FAERS Safety Report 8530039-6 (Version None)
Quarter: 2012Q3

REPORT INFORMATION
  Report Type: 
  Country: None (occurrence: None)
  Receive Date: 20120723
  Receipt Date: 20120713
  Transmission Date: 20120928
  Serious: No
  Sender: FDA-Public Use
  Company Number: US-JNJFOC-20110302832

PATIENT
  Age: 38 Year
  Sex: Female

DRUGS (10)
  1. GEODON [Concomitant]
     Route: 048
     Dates: start: 20110201
  2. PROPRANOLOL [Concomitant]
     Route: 065
  3. INVEGA SUSTENNA [Suspect]
     Indication: SCHIZOAFFECTIVE DISORDER
     Route: 030
     Dates: start: 20101201, end: 20110201
  4. INVEGA SUSTENNA [Suspect]
     Route: 030
     Dates: start: 20100101, end: 20100101
  5. INVEGA SUSTENNA [Suspect]
     Indication: PANIC DISORDER
     Route: 030
     Dates: start: 20101201, end: 20110201
  6. HALOPERIDOL DECANOATE [Suspect]
     Indication: SCHIZOAFFECTIVE DISORDER
     Dates: end: 20100101
  7. INVEGA SUSTENNA [Suspect]
     Route: 030
     Dates: start: 20100101, end: 20100101
  8. INVEGA [Concomitant]
     Indication: SCHIZOAFFECTIVE DISORDER
     Route: 048
     Dates: start: 20110201
  9. HALOPERIDOL DECANOATE [Suspect]
     Indication: PANIC DISORDER
     Dates: end: 20100101
  10. INVEGA [Concomitant]
     Indication: PANIC DISORDER
     Route: 048
     Dates: start: 20110201

REACTIONS (2)
  - AKATHISIA [None]
  - STEREOTYPY [None]
